FAERS Safety Report 7235108-9 (Version None)
Quarter: 2011Q1

REPORT INFORMATION
  Report Type: 
  Country: None (occurrence: None)
  Receive Date: 20110120
  Receipt Date: 20101230
  Transmission Date: 20110831
  Serious: No
  Sender: FDA-Public Use
  Company Number: US-B.I. PHARMACEUTICALS,INC./RIDGEFIELD-2011-BP-00356BP

PATIENT
  Sex: Male

DRUGS (3)
  1. AVODART [Suspect]
     Route: 048
  2. FLOMAX [Suspect]
     Route: 048
  3. RAPAFLO [Suspect]
     Dosage: 8 MG
     Route: 048

REACTIONS (3)
  - GENITAL DISCOMFORT [None]
  - PROSTATIC SPECIFIC ANTIGEN INCREASED [None]
  - HAEMATURIA [None]
